FAERS Safety Report 4302640-7 (Version None)
Quarter: 2004Q1

REPORT INFORMATION
  Report Type: 
  Country: None (occurrence: None)
  Receive Date: 20040220
  Receipt Date: 20040217
  Transmission Date: 20041129
  Serious: Yes (Hospitalization)
  Sender: FDA-Public Use
  Company Number: TPA2004A00195

PATIENT
  Age: 72 Year
  Sex: Female
  Weight: 77.1115 kg

DRUGS (4)
  1. ACTOS [Suspect]
     Indication: DIABETES MELLITUS NON-INSULIN-DEPENDENT
     Dosage: 30 MG, 1 IN 1 D, PER ORAL
     Route: 048
     Dates: start: 19990101
  2. TIAZAC [Concomitant]
  3. ACCUPRIL [Concomitant]
  4. DIABETA [Concomitant]

REACTIONS (3)
  - CRUSH INJURY [None]
  - ROAD TRAFFIC ACCIDENT [None]
  - SPINAL FRACTURE [None]
